FAERS Safety Report 8859257 (Version 37)
Quarter: 2016Q4

REPORT INFORMATION
  Report Type: Report from Study
  Country: CA (occurrence: CA)
  Receive Date: 20121024
  Receipt Date: 20161230
  Transmission Date: 20170207
  Serious: Yes (Life-Threatening, Other)
  Sender: FDA-Public Use
  Company Number: CA-ROCHE-1109752

PATIENT
  Age: 63 Year
  Sex: Female
  Weight: 64 kg

DRUGS (13)
  1. PREDNISONE. [Concomitant]
     Active Substance: PREDNISONE
     Route: 065
     Dates: start: 2010
  2. SOLU-MEDROL [Concomitant]
     Active Substance: METHYLPREDNISOLONE SODIUM SUCCINATE
     Route: 065
     Dates: start: 20080205
  3. QUETIAPINE. [Concomitant]
     Active Substance: QUETIAPINE
  4. LURASIDONE HYDROCHLORIDE [Concomitant]
     Active Substance: LURASIDONE HYDROCHLORIDE
     Route: 065
     Dates: start: 201408
  5. ACTEMRA [Suspect]
     Active Substance: TOCILIZUMAB
     Dosage: 22/MAR/2016
     Route: 042
     Dates: start: 20140826
  6. VITAMIN C [Concomitant]
     Active Substance: ASCORBIC ACID
  7. METHOTREXATE. [Concomitant]
     Active Substance: METHOTREXATE
     Route: 058
     Dates: start: 20080205
  8. CORTISONE ACETATE. [Suspect]
     Active Substance: CORTISONE ACETATE
     Indication: MUSCULOSKELETAL PAIN
     Route: 065
  9. TYLENOL WITH CODEINE [Concomitant]
     Active Substance: ACETAMINOPHEN\CODEINE PHOSPHATE
  10. ACTEMRA [Suspect]
     Active Substance: TOCILIZUMAB
     Route: 042
     Dates: start: 20160419
  11. ACTEMRA [Suspect]
     Active Substance: TOCILIZUMAB
     Indication: RHEUMATOID ARTHRITIS
     Route: 042
     Dates: start: 20110322
  12. ACTEMRA [Suspect]
     Active Substance: TOCILIZUMAB
     Route: 042
     Dates: start: 20140226
  13. RAMIPRIL. [Concomitant]
     Active Substance: RAMIPRIL

REACTIONS (32)
  - Type 2 diabetes mellitus [Not Recovered/Not Resolved]
  - Tobacco withdrawal symptoms [Unknown]
  - Stress [Not Recovered/Not Resolved]
  - Musculoskeletal pain [Unknown]
  - Oxygen saturation decreased [Unknown]
  - Depression [Not Recovered/Not Resolved]
  - Musculoskeletal stiffness [Not Recovered/Not Resolved]
  - Hair disorder [Recovered/Resolved]
  - Oropharyngeal pain [Unknown]
  - Infusion related reaction [Unknown]
  - Blood pressure increased [Unknown]
  - Bipolar disorder [Unknown]
  - Hepatic enzyme increased [Not Recovered/Not Resolved]
  - Blood pressure fluctuation [Unknown]
  - Silent myocardial infarction [Unknown]
  - Pneumonia [Unknown]
  - Drug ineffective [Unknown]
  - Pain [Not Recovered/Not Resolved]
  - Weight increased [Not Recovered/Not Resolved]
  - Pain in extremity [Unknown]
  - Oxygen saturation decreased [Unknown]
  - Hypotension [Unknown]
  - Weight decreased [Not Recovered/Not Resolved]
  - Sunburn [Recovering/Resolving]
  - Weight decreased [Recovered/Resolved]
  - Osteoarthritis [Not Recovered/Not Resolved]
  - Oral herpes [Unknown]
  - Fungal skin infection [Unknown]
  - Lower respiratory tract infection [Recovered/Resolved]
  - Arthralgia [Not Recovered/Not Resolved]
  - Hypotension [Unknown]
  - Blood pressure increased [Unknown]

NARRATIVE: CASE EVENT DATE: 2012
